FAERS Safety Report 4370640-7 (Version None)
Quarter: 2004Q2

REPORT INFORMATION
  Report Type: 
  Country: None (occurrence: None)
  Receive Date: 20040525
  Receipt Date: 20040512
  Transmission Date: 20050107
  Serious: Yes (Hospitalization, Other)
  Sender: FDA-Public Use
  Company Number: JACFRA2000000294

PATIENT
  Age: 70 Year
  Sex: Male

DRUGS (5)
  1. SPORANOX [Suspect]
     Indication: ASPERGILLOSIS
     Dosage: 200 MG, ORAL
     Route: 048
     Dates: start: 19970101, end: 20040415
  2. AUGMENTIN [Concomitant]
  3. CIPROFLOXACIN [Concomitant]
  4. LASIX [Concomitant]
  5. POTASSIUM CHLORIDE [Concomitant]

REACTIONS (11)
  - ALVEOLITIS FIBROSING [None]
  - CARDIOMEGALY [None]
  - CONDITION AGGRAVATED [None]
  - CYANOSIS [None]
  - CYTOLYTIC HEPATITIS [None]
  - DRUG LEVEL INCREASED [None]
  - GENERAL PHYSICAL HEALTH DETERIORATION [None]
  - INTERSTITIAL LUNG DISEASE [None]
  - MITRAL VALVE INCOMPETENCE [None]
  - PLEURAL CALCIFICATION [None]
  - PULMONARY HYPERTENSION [None]
